FAERS Safety Report 7340221-1 (Version None)
Quarter: 2011Q1

REPORT INFORMATION
  Report Type: 
  Country: None (occurrence: None)
  Receive Date: 20110309
  Receipt Date: 20110301
  Transmission Date: 20110831
  Serious: Yes (Other)
  Sender: FDA-Public Use
  Company Number: US-AMGEN-USASP2011011742

PATIENT
  Age: 34 Year
  Sex: Male

DRUGS (1)
  1. ENBREL [Suspect]
     Indication: SUBCORNEAL PUSTULAR DERMATOSIS
     Dosage: 50 MG, 2 TIMES/WK
     Dates: start: 20100901

REACTIONS (6)
  - PRURITUS [None]
  - MENTAL DISORDER [None]
  - FEELING ABNORMAL [None]
  - SKIN FISSURES [None]
  - BLISTER [None]
  - THERAPEUTIC RESPONSE DECREASED [None]
